FAERS Safety Report 17180581 (Version 1)
Quarter: 2019Q4

REPORT INFORMATION
  Report Type: Spontaneous
  Country: CA (occurrence: CA)
  Receive Date: 20191220
  Receipt Date: 20191220
  Transmission Date: 20200122
  Serious: Yes (Other)
  Sender: FDA-Public Use
  Company Number: CA-ROCHE-2487541

PATIENT
  Age: 71 Year
  Sex: Female

DRUGS (1)
  1. TECENTRIQ [Suspect]
     Active Substance: ATEZOLIZUMAB
     Indication: NON-SMALL CELL LUNG CANCER
     Dosage: ONGOING
     Route: 042
     Dates: start: 20191023

REACTIONS (14)
  - Dry mouth [Unknown]
  - Diarrhoea [Unknown]
  - Anxiety [Recovering/Resolving]
  - Localised infection [Not Recovered/Not Resolved]
  - Decreased appetite [Recovered/Resolved]
  - Mucosal inflammation [Unknown]
  - Dry skin [Not Recovered/Not Resolved]
  - Ocular vascular disorder [Not Recovered/Not Resolved]
  - Dyspnoea [Not Recovered/Not Resolved]
  - Fatigue [Not Recovered/Not Resolved]
  - Constipation [Unknown]
  - Rash [Recovering/Resolving]
  - Dysphagia [Unknown]
  - General physical health deterioration [Recovered/Resolved]

NARRATIVE: CASE EVENT DATE: 20191113
